FAERS Safety Report 5152137-X (Version None)
Quarter: 2006Q4

REPORT INFORMATION
  Report Type: 
  Country: None (occurrence: None)
  Receive Date: 20061109
  Receipt Date: 20061030
  Transmission Date: 20070319
  Serious: Yes (Other)
  Sender: FDA-Public Use
  Company Number: 2006133974

PATIENT
  Sex: Female

DRUGS (2)
  1. CELEBREX [Suspect]
     Dosage: ORAL
     Route: 048
     Dates: start: 20041011
  2. VIOXX [Suspect]
     Dosage: ORAL
     Route: 048
     Dates: start: 20040913

REACTIONS (1)
  - MYOCARDIAL ISCHAEMIA [None]
